FAERS Safety Report 5832434-2 (Version None)
Quarter: 2008Q3

REPORT INFORMATION
  Report Type: 
  Country: None (occurrence: None)
  Receive Date: 20080730
  Receipt Date: 20080724
  Transmission Date: 20090109
  Serious: Yes (Other)
  Sender: FDA-Public Use
  Company Number: OMPQ-PR-0807S-0473

PATIENT
  Age: 19 Year
  Sex: Male
  Weight: 72.5755 kg

DRUGS (1)
  1. OMNIPAQUE 140 [Suspect]
     Indication: MEDIASTINAL DISORDER
     Dosage: 80 ML, SINGLE DOSE, I.V.
     Route: 042
     Dates: start: 20080717, end: 20080717

REACTIONS (7)
  - ABDOMINAL PAIN [None]
  - DEHYDRATION [None]
  - DIARRHOEA [None]
  - HAEMODIALYSIS [None]
  - NAUSEA [None]
  - RENAL TUBULAR NECROSIS [None]
  - VOMITING [None]
